FAERS Safety Report 9812360 (Version 2)
Quarter: 2014Q1

REPORT INFORMATION
  Report Type: Report from Study
  Country: US (occurrence: US)
  Receive Date: 20140113
  Receipt Date: 20140113
  Transmission Date: 20141002
  Serious: Yes (Life-Threatening)
  Sender: FDA-Public Use
  Company Number: US-ROCHE-1059525

PATIENT
  Age: 46 Year
  Sex: Female

DRUGS (16)
  1. GDC-0941 (PI3K INHIBITOR) [Suspect]
     Indication: BREAST CANCER METASTATIC
     Dosage: MOST RECENT DOSE 12/APR/2012
     Route: 048
     Dates: start: 20120227
  2. TRASTUZUMAB EMTANSINE [Suspect]
     Indication: BREAST CANCER METASTATIC
     Dosage: DATE OF MOST RECENT DOSE OF T-DM1 PRIOR TO AE ONSET : 29 MAR 2012
     Route: 042
     Dates: start: 20120224
  3. ADVAIR [Concomitant]
     Indication: DYSPNOEA
     Route: 055
     Dates: start: 20111212
  4. ALBUTEROL [Concomitant]
     Indication: DYSPNOEA
     Route: 055
     Dates: start: 20120112
  5. CLONAZEPAM [Concomitant]
     Indication: ANXIETY
     Route: 048
     Dates: start: 20110512
  6. COLACE [Concomitant]
     Indication: CONSTIPATION PROPHYLAXIS
     Route: 048
     Dates: start: 20110527
  7. COMPAZINE [Concomitant]
     Indication: NAUSEA
     Route: 048
     Dates: start: 20120301
  8. NEURONTIN (UNITED STATES) [Concomitant]
     Indication: NEUROPATHY PERIPHERAL
     Route: 048
     Dates: start: 20110312
  9. OXYCODONE [Concomitant]
     Indication: MUSCULOSKELETAL CHEST PAIN
     Route: 048
     Dates: start: 20120329
  10. OXYCONTIN [Concomitant]
     Indication: MUSCULOSKELETAL CHEST PAIN
     Route: 048
     Dates: start: 20120329
  11. PAXIL [Concomitant]
     Indication: DEPRESSION
     Route: 048
     Dates: start: 20110901
  12. VANCOMYCIN [Concomitant]
     Indication: PNEUMONIA
     Route: 042
     Dates: start: 20120317, end: 20120325
  13. ZOSYN [Concomitant]
     Indication: PNEUMONIA
     Route: 042
     Dates: start: 20120317, end: 20120325
  14. ACYCLOVIR [Concomitant]
     Indication: CELLULITIS
     Route: 061
     Dates: start: 20120313, end: 20120329
  15. PREDNISONE [Concomitant]
     Indication: PROPHYLAXIS
     Route: 048
     Dates: start: 20120317, end: 20120328
  16. POTASSIUM CHLORIDE [Concomitant]
     Indication: HYPOKALAEMIA
     Route: 048
     Dates: start: 20120405

REACTIONS (1)
  - Pulmonary embolism [Recovered/Resolved]
